FAERS Safety Report 7479599-7 (Version None)
Quarter: 2011Q2

REPORT INFORMATION
  Report Type: 
  Country: None (occurrence: None)
  Receive Date: 20110513
  Receipt Date: 20090518
  Transmission Date: 20111010
  Serious: Yes (Hospitalization, Other)
  Sender: FDA-Public Use
  Company Number: US-BAYER-200920906NA

PATIENT
  Age: 65 Year
  Sex: Male
  Weight: 83 kg

DRUGS (23)
  1. MILRINONE [Concomitant]
     Dosage: UNK
     Dates: start: 20060111
  2. TOPROL-XL [Concomitant]
     Dosage: 2.5 MG
     Route: 042
     Dates: start: 20060117
  3. PEPCID AC [Concomitant]
     Dosage: UNK
     Dates: start: 20060111
  4. HEPARIN [Concomitant]
     Dosage: UNK
     Dates: start: 20060111
  5. ALTACE [Concomitant]
     Dosage: UNK
     Route: 048
     Dates: start: 20040101
  6. TOPROL-XL [Concomitant]
     Dosage: UNK
     Route: 048
     Dates: start: 20040101
  7. EPINEPHRINE [Concomitant]
     Dosage: UNK
     Dates: start: 20060111
  8. TRASYLOL [Suspect]
     Indication: CORONARY ARTERY BYPASS
     Dosage: 1 ML, UNK, INITIAL TEST DOSE
     Route: 042
     Dates: start: 20060111, end: 20060111
  9. ALBUMEN [Concomitant]
     Dosage: UNK
     Dates: start: 20060111
  10. MANNITOL [Concomitant]
     Dosage: UNK
     Dates: start: 20060111
  11. PROTAMINE SULFATE [Concomitant]
     Dosage: UNK
     Dates: start: 20060111
  12. MIDAZOLAM HCL [Concomitant]
     Dosage: UNK
     Dates: start: 20060111
  13. PEPCID AC [Concomitant]
     Dosage: UNK
     Route: 048
     Dates: start: 20040101
  14. DEXAMETHASONE [Concomitant]
     Dosage: UNK
     Dates: start: 20060111
  15. FRESH FROZEN PLASMA [Concomitant]
     Dosage: 2 UNITS
     Dates: start: 20060111
  16. PLAVIX [Concomitant]
     Dosage: UNK
     Route: 048
     Dates: start: 20051205
  17. CEFAZOLIN [Concomitant]
     Dosage: UNK
     Dates: start: 20060111
  18. LASIX [Concomitant]
     Dosage: UNK
     Dates: start: 20060111
  19. RED BLOOD CELLS, CONCENTRATED [Concomitant]
     Dosage: 2 UNITS
     Dates: start: 20060111
  20. TRASYLOL [Suspect]
     Dosage: 50CC PER HOUR INFUSION
     Route: 042
     Dates: start: 20060111, end: 20060111
  21. ASPIRIN [Concomitant]
     Dosage: UNK
     Route: 048
     Dates: start: 20050101
  22. VISIPAQUE [Concomitant]
     Dosage: 80 ML
     Route: 042
     Dates: start: 20051129, end: 20051129
  23. INSULIN 2 [Concomitant]
     Dosage: UNK
     Dates: start: 20060111

REACTIONS (8)
  - UNEVALUABLE EVENT [None]
  - DEPRESSION [None]
  - ANXIETY [None]
  - ANHEDONIA [None]
  - INJURY [None]
  - PAIN [None]
  - FEAR [None]
  - RENAL FAILURE [None]
